FAERS Safety Report 15854376 (Version 1)
Quarter: 2019Q1

REPORT INFORMATION
  Report Type: Other
  Country: HR (occurrence: HR)
  Receive Date: 20190122
  Receipt Date: 20190122
  Transmission Date: 20190417
  Serious: Yes (Hospitalization, Other)
  Sender: FDA-Public Use
  Company Number: HR-PROVELL PHARMACEUTICALS-2061554

PATIENT
  Age: 31 Year
  Sex: Female

DRUGS (40)
  1. EUTHYROX [Suspect]
     Active Substance: LEVOTHYROXINE SODIUM
  2. ALPRAZOLAM. [Suspect]
     Active Substance: ALPRAZOLAM
     Dates: start: 200805
  3. GABAPENTIN. [Suspect]
     Active Substance: GABAPENTIN
     Dates: start: 200904
  4. ULTRACET [Suspect]
     Active Substance: ACETAMINOPHEN\TRAMADOL HYDROCHLORIDE
     Dates: start: 201003
  5. SERTRALINE [Suspect]
     Active Substance: SERTRALINE HYDROCHLORIDE
     Dates: start: 200805
  6. EUTHYROX [Suspect]
     Active Substance: LEVOTHYROXINE SODIUM
     Indication: PAIN
     Dates: start: 200703
  7. BACLOFEN. [Suspect]
     Active Substance: BACLOFEN
     Dates: start: 200709
  8. ESOMEPRAZOLE. [Suspect]
     Active Substance: ESOMEPRAZOLE MAGNESIUM
     Dates: start: 201003
  9. ULTRACET [Suspect]
     Active Substance: ACETAMINOPHEN\TRAMADOL HYDROCHLORIDE
     Dates: start: 200904
  10. EUTHYROX [Suspect]
     Active Substance: LEVOTHYROXINE SODIUM
     Dates: start: 200703
  11. EUTHYROX [Suspect]
     Active Substance: LEVOTHYROXINE SODIUM
     Dates: start: 201003
  12. PREGABALIN. [Suspect]
     Active Substance: PREGABALIN
     Dates: start: 201003
  13. OXYCODONE [Suspect]
     Active Substance: OXYCODONE
     Dates: start: 201003
  14. SERTRALINE HYDROCHLORIDE. [Suspect]
     Active Substance: SERTRALINE HYDROCHLORIDE
     Dates: start: 200904
  15. ALPRAZOLAM. [Concomitant]
     Active Substance: ALPRAZOLAM
     Dates: start: 200805
  16. EUTHYROX [Suspect]
     Active Substance: LEVOTHYROXINE SODIUM
     Dates: start: 200709
  17. FEXOFENADINE [Suspect]
     Active Substance: FEXOFENADINE\FEXOFENADINE HYDROCHLORIDE
  18. RANITIDINE. [Suspect]
     Active Substance: RANITIDINE
     Dates: start: 200709
  19. OXYCODONE [Suspect]
     Active Substance: OXYCODONE
     Dates: start: 200904
  20. NEUROBION FORTE [Concomitant]
     Active Substance: CYANOCOBALAMIN\PYRIDOXINE HYDROCHLORIDE\THIAMINE DISULFIDE
     Dates: start: 200805
  21. FEXOFENADINE [Suspect]
     Active Substance: FEXOFENADINE\FEXOFENADINE HYDROCHLORIDE
     Dates: start: 201003
  22. BACLOFEN. [Suspect]
     Active Substance: BACLOFEN
     Dates: start: 200904
  23. BACLOFEN. [Suspect]
     Active Substance: BACLOFEN
     Dates: start: 201003
  24. NEUROBION FORTE [Suspect]
     Active Substance: CYANOCOBALAMIN\PYRIDOXINE HYDROCHLORIDE\THIAMINE DISULFIDE
     Dates: start: 200805
  25. DIAZEPAM. [Suspect]
     Active Substance: DIAZEPAM
     Dates: start: 201003
  26. GINKGO BILOBA [Suspect]
     Active Substance: GINKGO
     Dates: start: 201003
  27. BUPRENORPHINE. [Suspect]
     Active Substance: BUPRENORPHINE
     Dates: start: 200904
  28. ULTRACET [Suspect]
     Active Substance: ACETAMINOPHEN\TRAMADOL HYDROCHLORIDE
     Dates: start: 200805
  29. CARBAMAZEPINE. [Suspect]
     Active Substance: CARBAMAZEPINE
     Dates: start: 200709
  30. PANTOPRAZOLE [Suspect]
     Active Substance: PANTOPRAZOLE
     Dates: start: 200904
  31. ULTRACET [Suspect]
     Active Substance: ACETAMINOPHEN\TRAMADOL HYDROCHLORIDE
     Dates: start: 200709
  32. FENTANYL. [Suspect]
     Active Substance: FENTANYL
     Dates: start: 201003
  33. BACLOFEN. [Suspect]
     Active Substance: BACLOFEN
     Dates: start: 200805
  34. DIAZEPAM. [Suspect]
     Active Substance: DIAZEPAM
     Dates: start: 200709
  35. PIROXICAM. [Suspect]
     Active Substance: PIROXICAM
     Dates: start: 200709
  36. TRAMADOL. [Concomitant]
     Active Substance: TRAMADOL
  37. EUTHYROX [Suspect]
     Active Substance: LEVOTHYROXINE SODIUM
     Dates: start: 200904
  38. EUTHYROX [Suspect]
     Active Substance: LEVOTHYROXINE SODIUM
     Dates: start: 200805
  39. SERTRALINE HYDROCHLORIDE. [Suspect]
     Active Substance: SERTRALINE HYDROCHLORIDE
     Dates: start: 200805
  40. IBUPROFEN. [Suspect]
     Active Substance: IBUPROFEN
     Dates: start: 200703

REACTIONS (35)
  - Cognitive disorder [Unknown]
  - Sensory disturbance [Unknown]
  - Dizziness [Unknown]
  - Persistent depressive disorder [Unknown]
  - Musculoskeletal stiffness [Unknown]
  - Condition aggravated [Unknown]
  - Asthenia [Unknown]
  - Sedation [Unknown]
  - Confusional state [Unknown]
  - Diplopia [Unknown]
  - Syncope [Unknown]
  - Erythema [Unknown]
  - Constipation [Unknown]
  - Euphoric mood [Unknown]
  - Schizophrenia [Unknown]
  - Disturbance in attention [Unknown]
  - Rash [Unknown]
  - Feeling abnormal [Unknown]
  - Nausea [Unknown]
  - Pruritus [Unknown]
  - Drug ineffective [Unknown]
  - Loss of consciousness [Unknown]
  - Gastrointestinal motility disorder [Unknown]
  - Headache [Unknown]
  - Depression [Unknown]
  - Conversion disorder [Unknown]
  - Neurosis [Unknown]
  - Quadriparesis [Unknown]
  - Psychomotor skills impaired [Unknown]
  - Ataxia [Unknown]
  - Oedema [Unknown]
  - Anxiety [Unknown]
  - Pain [Unknown]
  - Fatigue [Unknown]
  - Vomiting [Unknown]
